FAERS Safety Report 9667620 (Version 1)
Quarter: 2013Q4

REPORT INFORMATION
  Report Type: Spontaneous
  Country: NL (occurrence: NL)
  Receive Date: 20131104
  Receipt Date: 20131104
  Transmission Date: 20140711
  Serious: Yes (Hospitalization)
  Sender: FDA-Public Use
  Company Number: NL-PFIZER INC-2013310223

PATIENT
  Age: 71 Year
  Sex: Male
  Weight: 112 kg

DRUGS (12)
  1. PANTOPRAZOLE [Suspect]
     Indication: GASTROINTESTINAL ANGIODYSPLASIA
     Dosage: 40 MG, 2X/DAY
     Route: 048
     Dates: start: 2009, end: 20131004
  2. BUMETANIDE [Suspect]
     Indication: CARDIAC FAILURE
     Dosage: 5 MG, DAILY
     Route: 048
     Dates: start: 2012
  3. TAMSULOSIN HYDROCHLORIDE [Concomitant]
     Dosage: 0.4 MG, UNK
  4. ZOLPIDEM [Concomitant]
     Dosage: 10 MG, UNK
  5. INSPRA [Concomitant]
     Dosage: 25 MG, UNK
  6. LISINOPRIL [Concomitant]
     Dosage: 20 MG, UNK
  7. ALLOPURINOL [Concomitant]
     Dosage: 100 MG, UNK
  8. BISACODYL [Concomitant]
     Dosage: 5 MG, UNK
  9. METOPROLOL [Concomitant]
     Dosage: 200 MG, UNK
  10. PANADOL [Concomitant]
     Dosage: 1000 MG, UNK
  11. SIMVASTATINE [Concomitant]
     Dosage: 40 MG, UNK
  12. ACENOCOUMAROL [Concomitant]
     Dosage: 1 MG, UNK

REACTIONS (3)
  - Hypomagnesaemia [Recovered/Resolved]
  - Hypocalcaemia [Recovered/Resolved]
  - Convulsion [Recovered/Resolved]
